FAERS Safety Report 24956667 (Version 1)
Quarter: 2025Q1

REPORT INFORMATION
  Report Type: Spontaneous
  Country: US (occurrence: None)
  Receive Date: 20250206
  Receipt Date: 20250206
  Transmission Date: 20250409
  Serious: Yes (Other)
  Sender: FDA-CTU
  Company Number: None

PATIENT
  Age: 57 Year
  Sex: Female
  Weight: 99.8 kg

DRUGS (1)
  1. ALYGLO [Suspect]
     Active Substance: HUMAN IMMUNOGLOBULIN G-STWK

REACTIONS (6)
  - Dizziness [None]
  - Dehydration [None]
  - Nausea [None]
  - Abdominal pain [None]
  - Oedema peripheral [None]
  - Musculoskeletal stiffness [None]

NARRATIVE: CASE EVENT DATE: 20250115
